FAERS Safety Report 5701890-2 (Version None)
Quarter: 2008Q2

REPORT INFORMATION
  Report Type: 
  Country: None (occurrence: None)
  Receive Date: 20080411
  Receipt Date: 20080404
  Transmission Date: 20081010
  Serious: Yes (Hospitalization)
  Sender: FDA-Public Use
  Company Number: PHRM2008FR01208

PATIENT
  Age: 66 Year
  Sex: Female

DRUGS (8)
  1. TRILEPTAL [Suspect]
     Dosage: 300 MG, BID
     Route: 048
     Dates: start: 20070715, end: 20071008
  2. TRILEPTAL [Suspect]
     Dosage: 600 MG, BID
     Route: 048
     Dates: start: 20071009, end: 20071015
  3. TRILEPTAL [Suspect]
     Dosage: 300 MG BID + 600 MG QD
     Route: 048
     Dates: start: 20071016
  4. FUROSEMIDE [Suspect]
     Dosage: 20 MG, QD
     Route: 048
     Dates: end: 20071111
  5. GLIMEPIRIDE [Suspect]
     Dosage: 2 MG, QD
     Route: 048
     Dates: start: 20071016
  6. MEDIATOR [Suspect]
     Dosage: 150 MG, TID
     Route: 048
     Dates: start: 20071016
  7. KARDEGIC [Concomitant]
  8. COVERSYL [Concomitant]
     Dates: end: 20071116

REACTIONS (3)
  - HYPONATRAEMIA [None]
  - TACHYPNOEA [None]
  - TREMOR [None]
